FAERS Safety Report 6546002-0 (Version None)
Quarter: 2010Q1

REPORT INFORMATION
  Report Type: 
  Country: None (occurrence: None)
  Receive Date: 20100121
  Receipt Date: 20100121
  Transmission Date: 20100710
  Serious: Yes (Other)
  Sender: FDA-Public Use
  Company Number: None

PATIENT
  Age: 55 Year
  Sex: Female

DRUGS (1)
  1. MAXAIR [Suspect]
     Indication: ASTHMA
     Dosage: INHALE 2 PUFFS EVERY 4 HOURS AS NEEDED
     Route: 055
     Dates: start: 20080201

REACTIONS (3)
  - DEVICE MALFUNCTION [None]
  - PRODUCT CLOSURE REMOVAL DIFFICULT [None]
  - PRODUCT MEASURED POTENCY ISSUE [None]
